FAERS Safety Report 10024699 (Version 2)
Quarter: 2014Q2

REPORT INFORMATION
  Report Type: Spontaneous
  Country: US (occurrence: None)
  Receive Date: 20140318
  Receipt Date: 20140416
  Transmission Date: 20141212
  Serious: Yes (Death, Hospitalization)
  Sender: FDA-Public Use
  Company Number: PT14-077-AE

PATIENT
  Age: 80 Year
  Sex: Female
  Weight: 44 kg

DRUGS (3)
  1. DEMECLOCYCLINE HCL [Suspect]
     Indication: INAPPROPRIATE ANTIDIURETIC HORMONE SECRETION
     Dosage: 3 TABLETS A DAY, ORAL
     Route: 048
     Dates: start: 20140209, end: 20140217
  2. AMLODIPINE [Concomitant]
  3. PHOS-NAK [Concomitant]

REACTIONS (6)
  - Thirst [None]
  - Enuresis [None]
  - Incontinence [None]
  - Heart rate increased [None]
  - Thrombocytopenia [None]
  - Renal failure acute [None]
